FAERS Safety Report 5059985-5 (Version None)
Quarter: 2006Q3

REPORT INFORMATION
  Report Type: 
  Country: None (occurrence: None)
  Receive Date: 20060724
  Receipt Date: 20050126
  Transmission Date: 20061208
  Serious: Yes (Death)
  Sender: FDA-Public Use
  Company Number: US-ABBOTT-05P-163-0288306-00

PATIENT
  Sex: Male

DRUGS (4)
  1. RITONAVIR SOFT GELATIN CAPSULES [Suspect]
     Indication: HIV INFECTION
     Route: 048
     Dates: start: 20030807, end: 20030814
  2. SAQUINAVIR [Concomitant]
     Indication: HIV INFECTION
     Route: 048
     Dates: start: 20030807, end: 20030814
  3. DIDANOSINE [Concomitant]
     Indication: HIV INFECTION
     Dates: start: 20030807, end: 20030814
  4. TENOFOVIR [Concomitant]
     Indication: HIV INFECTION
     Dates: start: 20030807, end: 20030814

REACTIONS (1)
  - DEATH [None]
